FAERS Safety Report 5371377-8 (Version None)
Quarter: 2007Q2

REPORT INFORMATION
  Report Type: 
  Country: None (occurrence: None)
  Receive Date: 20070615
  Receipt Date: 20070206
  Transmission Date: 20071010
  Serious: Yes (Other)
  Sender: FDA-Public Use
  Company Number: 200614696US

PATIENT
  Age: 77 Year
  Sex: Female
  Weight: 79.1 kg

DRUGS (9)
  1. LANTUS [Suspect]
     Indication: DIABETES MELLITUS NON-INSULIN-DEPENDENT
     Dosage: 40 U QPM INJ
     Dates: start: 20050906
  2. LANTUS [Suspect]
     Indication: DIABETES MELLITUS NON-INSULIN-DEPENDENT
     Dosage: 30 U QPM
  3. METOPROLOL SUCCINATE (TOPROL) [Concomitant]
  4. FOSAMAX [Concomitant]
  5. ROPINIROLE HYDROCHLORIDE (REQUIP) [Concomitant]
  6. PIOGLITAZONE LEVODOPA, CARBIDOPA (SINEMET) [Concomitant]
  7. DILTIAZEM (CARDIZEM /00489701/) [Concomitant]
  8. AMARYL [Concomitant]
  9. ATORVASTATIN CALCIUM (LIPITOR) [Concomitant]

REACTIONS (3)
  - BLOOD GLUCOSE INCREASED [None]
  - DEPRESSED LEVEL OF CONSCIOUSNESS [None]
  - HYPOGLYCAEMIA [None]
